FAERS Safety Report 9610920 (Version 5)
Quarter: 2013Q4

REPORT INFORMATION
  Report Type: Report from Study
  Country: GB (occurrence: GB)
  Receive Date: 20131009
  Receipt Date: 20131230
  Transmission Date: 20140711
  Serious: Yes (Hospitalization)
  Sender: FDA-Public Use
  Company Number: GB-PFIZER INC-2013281936

PATIENT
  Age: 60 Year
  Sex: Male
  Weight: 103 kg

DRUGS (3)
  1. TEMSIROLIMUS [Suspect]
     Dosage: 10 MG, UNK
     Dates: start: 20130704, end: 20130912
  2. GEMCITABINE HYDROCHLORIDE [Suspect]
     Dosage: 1700 MG, 2X/DAY
     Dates: start: 20130613, end: 20130919
  3. CISPLATIN [Suspect]
     Dosage: 154 MG, UNK
     Dates: start: 20130613, end: 20130919

REACTIONS (1)
  - Neutropenic sepsis [Recovered/Resolved]
